FAERS Safety Report 16812633 (Version 4)
Quarter: 2020Q3

REPORT INFORMATION
  Report Type: Report from Study
  Country: US (occurrence: US)
  Receive Date: 20190916
  Receipt Date: 20200911
  Transmission Date: 20201102
  Serious: No
  Sender: FDA-Public Use
  Company Number: PHEH2019US037925

PATIENT
  Sex: Female

DRUGS (2)
  1. COSENTYX [Suspect]
     Active Substance: SECUKINUMAB
     Indication: GUTTATE PSORIASIS
     Dosage: 300 MG, QMO
     Route: 065
     Dates: start: 20190101
  2. COSENTYX [Suspect]
     Active Substance: SECUKINUMAB
     Dosage: 300 MG, EVERY 4 WEEKS
     Route: 058

REACTIONS (4)
  - Incorrect dose administered [Unknown]
  - Device issue [Unknown]
  - Off label use [Unknown]
  - Product dose omission issue [Unknown]
